FAERS Safety Report 7901149-9 (Version None)
Quarter: 2011Q4

REPORT INFORMATION
  Report Type: 
  Country: None (occurrence: None)
  Receive Date: 20111108
  Receipt Date: 20111104
  Transmission Date: 20120403
  Serious: Yes (Other)
  Sender: FDA-Public Use
  Company Number: JP-PFIZER INC-2011172416

PATIENT
  Age: 57 Year
  Sex: Male

DRUGS (6)
  1. VESICARE [Concomitant]
     Dosage: UNK
     Route: 048
  2. RIZE [Concomitant]
     Dosage: UNK
     Route: 048
  3. CELECOXIB [Concomitant]
     Dosage: 200 MG, DAILY
     Route: 048
  4. WARFARIN [Concomitant]
     Dosage: 3 MG, DAILY
     Route: 048
  5. METHYCOBAL [Concomitant]
     Dosage: 100 MG, DAILY
     Route: 048
  6. LYRICA [Suspect]
     Dosage: 50 MG, DAILY
     Route: 048
     Dates: start: 20110609, end: 20110726

REACTIONS (1)
  - CARDIOVASCULAR DISORDER [None]
